FAERS Safety Report 17201766 (Version 1)
Quarter: 2019Q4

REPORT INFORMATION
  Report Type: Spontaneous
  Country: BR (occurrence: BR)
  Receive Date: 20191226
  Receipt Date: 20191226
  Transmission Date: 20200122
  Serious: Yes (Death, Other)
  Sender: FDA-Public Use
  Company Number: BR-PFIZER INC-2019517855

PATIENT
  Age: 76 Year
  Sex: Male

DRUGS (1)
  1. SUTENT [Suspect]
     Active Substance: SUNITINIB MALATE
     Dosage: UNK
     Dates: start: 201910, end: 20191214

REACTIONS (12)
  - Peripheral swelling [Unknown]
  - Peripheral coldness [Unknown]
  - Pain [Unknown]
  - Urinary retention [Unknown]
  - Decreased appetite [Unknown]
  - Condition aggravated [Unknown]
  - Death [Fatal]
  - Vomiting [Unknown]
  - Skin discolouration [Unknown]
  - Skin atrophy [Unknown]
  - Fatigue [Unknown]
  - Dyspnoea [Unknown]

NARRATIVE: CASE EVENT DATE: 2019
